FAERS Safety Report 8876857 (Version 1)
Quarter: 2012Q4

REPORT INFORMATION
  Report Type: 
  Country: US (occurrence: US)
  Receive Date: 20121023
  Receipt Date: 20121023
  Transmission Date: 20130627
  Serious: Yes (Hospitalization)
  Sender: FDA-Public Use
  Company Number: US-AMGEN-USASP2012053973

PATIENT
  Age: 57 Year
  Sex: Female
  Weight: 101.13 kg

DRUGS (5)
  1. ENBREL [Suspect]
     Indication: PRODUCT USED FOR UNKNOWN INDICATION
     Dosage: 50 mg, qwk
     Route: 058
  2. VITAMIN C                          /00008001/ [Concomitant]
     Dosage: 500 mg, UNK
  3. NORCO [Concomitant]
     Dosage: 5-325MG
  4. HYDROCHLOROTHIAZIDE WITH TRIAMTERENE [Concomitant]
     Dosage: 25-37.5
  5. B 12 [Concomitant]
     Dosage: 1 mg, UNK

REACTIONS (3)
  - Bronchopneumonia [Unknown]
  - Diverticulitis [Unknown]
  - Rheumatoid arthritis [Unknown]
